FAERS Safety Report 4481794-6 (Version None)
Quarter: 2004Q4

REPORT INFORMATION
  Report Type: 
  Country: None (occurrence: None)
  Receive Date: 20041021
  Receipt Date: 20041018
  Transmission Date: 20050328
  Serious: Yes (Hospitalization)
  Sender: FDA-Public Use
  Company Number: US-MERCK-0410USA02686

PATIENT
  Age: 82 Year
  Sex: Female

DRUGS (5)
  1. VIOXX [Suspect]
     Indication: ARTHRITIS
     Route: 048
     Dates: start: 20020717, end: 20040930
  2. NOLVADEX [Concomitant]
     Route: 065
  3. THEOPHYLLINE [Concomitant]
     Route: 065
  4. PRINIVIL [Concomitant]
     Route: 048
  5. ASPIRIN [Concomitant]
     Route: 065

REACTIONS (4)
  - ABDOMINAL PAIN UPPER [None]
  - BREAST CANCER FEMALE [None]
  - CHEST PAIN [None]
  - SYNCOPE [None]
